FAERS Safety Report 23335999 (Version 1)
Quarter: 2023Q4

REPORT INFORMATION
  Report Type: Spontaneous
  Country: US (occurrence: US)
  Receive Date: 20231225
  Receipt Date: 20231225
  Transmission Date: 20240109
  Serious: No
  Sender: FDA-Public Use
  Company Number: US-SA-2023SA362571

PATIENT
  Age: 55 Year
  Sex: Male

DRUGS (4)
  1. ELOCTATE [Suspect]
     Active Substance: EFMOROCTOCOG ALFA
     Indication: Haemorrhage prophylaxis
     Dosage: 3500 U (+/-10%), BIW (EVERY 4 DAYS FOR BLEEDING PROPHYLAXIS)
     Route: 042
  2. ELOCTATE [Suspect]
     Active Substance: EFMOROCTOCOG ALFA
     Indication: Haemorrhage prophylaxis
     Dosage: 3500 U (+/-10%), BIW (EVERY 4 DAYS FOR BLEEDING PROPHYLAXIS)
     Route: 042
  3. ELOCTATE [Suspect]
     Active Substance: EFMOROCTOCOG ALFA
     Dosage: 3500 U (+/-10%), PRN (AS NEEDED FOR BLEEDING/INJURY AS INSTRUCTED PER HEMATOLOGY)
     Route: 042
  4. ELOCTATE [Suspect]
     Active Substance: EFMOROCTOCOG ALFA
     Dosage: 3500 U (+/-10%), PRN (AS NEEDED FOR BLEEDING/INJURY AS INSTRUCTED PER HEMATOLOGY)
     Route: 042

REACTIONS (1)
  - Haemorrhage [Unknown]

NARRATIVE: CASE EVENT DATE: 20231211
